FAERS Safety Report 5208540-2 (Version None)
Quarter: 2007Q1

REPORT INFORMATION
  Report Type: 
  Country: None (occurrence: None)
  Receive Date: 20070115
  Receipt Date: 20060927
  Transmission Date: 20070707
  Serious: Yes (Death)
  Sender: FDA-Public Use
  Company Number: AR-BOEHRINGER INGELHEIM PHARMACEUTICALS, INC.-2004-BP-04500RA

PATIENT
  Sex: Male
  Weight: 61.1 kg

DRUGS (6)
  1. TIPRANAVIR / RITONAVIR CAPSULES, SOFTGELATIN [Suspect]
     Indication: HIV INFECTION
     Dosage: TPV/RTV 1000/400 MG
     Route: 048
     Dates: start: 20030827, end: 20040525
  2. PIRIMETAMINE [Concomitant]
     Indication: TOXOPLASMOSIS
     Route: 048
     Dates: start: 20031025, end: 20040525
  3. SULPHIADIAZINE [Concomitant]
     Indication: TOXOPLASMOSIS
     Dosage: 1000 MG/D
     Route: 048
     Dates: start: 20031025, end: 20040525
  4. FOLINIC ACID [Concomitant]
     Indication: TOXOPLASMOSIS
     Route: 048
     Dates: start: 20031025, end: 20040525
  5. CLONAZEPAM [Concomitant]
     Indication: ANXIETY
     Route: 048
     Dates: start: 20040316, end: 20040525
  6. GENERIC FERRUM [Concomitant]
     Indication: ANAEMIA
     Dosage: 7,5/330 MG
     Route: 048
     Dates: start: 20040330, end: 20040525

REACTIONS (1)
  - DEATH [None]
